FAERS Safety Report 7684127-7 (Version None)
Quarter: 2011Q3

REPORT INFORMATION
  Report Type: 
  Country: None (occurrence: None)
  Receive Date: 20110815
  Receipt Date: 20110812
  Transmission Date: 20111222
  Serious: Yes (Other)
  Sender: FDA-Public Use
  Company Number: DE-ABBOTT-11P-062-0724986-00

PATIENT
  Age: 45 Year
  Sex: Female
  Weight: 33.2 kg

DRUGS (24)
  1. ZEMPLAR [Suspect]
     Indication: RENAL FAILURE CHRONIC
     Route: 042
     Dates: start: 20091218
  2. ALPHACALCIDOL [Concomitant]
     Indication: PRODUCT USED FOR UNKNOWN INDICATION
     Route: 048
  3. ERYTHROPOETIN [Concomitant]
     Indication: PRODUCT USED FOR UNKNOWN INDICATION
     Dosage: PREFILLED SYRINGE 4000, 12000IU PER WEEK
     Dates: start: 20090504
  4. IRON-III-ION [Concomitant]
     Indication: PRODUCT USED FOR UNKNOWN INDICATION
     Dosage: 3X62.5MG/5ML PER WEEK
     Dates: start: 20090520
  5. SEVELAMER [Concomitant]
     Indication: PRODUCT USED FOR UNKNOWN INDICATION
     Dates: start: 20100112
  6. EPOETIN ALFA 3000IU TIS [Concomitant]
     Indication: PRODUCT USED FOR UNKNOWN INDICATION
     Dates: start: 20100112
  7. IRON -III-ION [Concomitant]
     Dosage: 62.5MG TIS
     Dates: start: 20090520, end: 20100109
  8. MORPHIUMSULFATE 5 [Concomitant]
     Indication: PRODUCT USED FOR UNKNOWN INDICATION
     Dates: start: 20090525
  9. ASPIRIN [Concomitant]
     Indication: PRODUCT USED FOR UNKNOWN INDICATION
     Dates: start: 20090101
  10. EPOETIN ALFA [Concomitant]
     Dates: start: 20100112
  11. AMLODIPINE [Concomitant]
     Indication: PRODUCT USED FOR UNKNOWN INDICATION
     Dates: start: 20090602
  12. COLECALCIFEROL [Concomitant]
     Indication: PRODUCT USED FOR UNKNOWN INDICATION
     Dosage: 40000IU QS
     Dates: start: 20100119
  13. IRON-III-ION [Concomitant]
     Dates: start: 20090520, end: 20100109
  14. METOPROLOLSUCCINAT [Concomitant]
     Indication: PRODUCT USED FOR UNKNOWN INDICATION
     Dates: start: 20090525
  15. PANTOPRAZOLE [Concomitant]
     Indication: PRODUCT USED FOR UNKNOWN INDICATION
     Dates: start: 20090201
  16. FUROSEMIDE [Concomitant]
     Indication: PRODUCT USED FOR UNKNOWN INDICATION
     Dates: start: 20091124
  17. ZOPLICON [Concomitant]
     Indication: PRODUCT USED FOR UNKNOWN INDICATION
  18. AMIODARON HYDROCHLORID [Concomitant]
     Indication: PRODUCT USED FOR UNKNOWN INDICATION
     Dates: start: 20090512
  19. ACETYLCYSTEINE [Concomitant]
     Indication: PRODUCT USED FOR UNKNOWN INDICATION
     Dates: start: 20091105
  20. RENALGEL [Concomitant]
     Indication: PRODUCT USED FOR UNKNOWN INDICATION
     Dates: start: 20100908
  21. RENALGEL [Concomitant]
     Dates: start: 20100930
  22. L-THYROXIN-NA-X WASSER [Concomitant]
     Indication: PRODUCT USED FOR UNKNOWN INDICATION
     Dates: start: 20090611
  23. AMPHOTERICIN B [Concomitant]
     Indication: PRODUCT USED FOR UNKNOWN INDICATION
     Dates: start: 20091008
  24. EPOETIN ALFA [Concomitant]
     Indication: PRODUCT USED FOR UNKNOWN INDICATION
     Dates: start: 20090504, end: 20100109

REACTIONS (5)
  - GASTRITIS EROSIVE [None]
  - PERIPHERAL ARTERIAL OCCLUSIVE DISEASE [None]
  - CATHETER SITE INFECTION [None]
  - AORTIC ANEURYSM [None]
  - HEPATIC CIRRHOSIS [None]
